FAERS Safety Report 8565325-7 (Version None)
Quarter: 2012Q3

REPORT INFORMATION
  Report Type: 
  Country: None (occurrence: None)
  Receive Date: 20120803
  Receipt Date: 20120730
  Transmission Date: 20120928
  Serious: Yes (Life-Threatening, Hospitalization)
  Sender: FDA-Public Use
  Company Number: CN-ASTRAZENECA-2012SE53756

PATIENT
  Age: 30 Year
  Sex: Female
  Weight: 55 kg

DRUGS (3)
  1. LIDOCAINE [Suspect]
     Indication: ANAESTHESIA
     Route: 005
     Dates: start: 20110826
  2. ATROPINE [Concomitant]
     Route: 030
     Dates: start: 20110826
  3. TRAMADOL HCL [Concomitant]
     Route: 030
     Dates: start: 20110826

REACTIONS (7)
  - PULSE ABSENT [None]
  - CONVULSION [None]
  - PUPILLARY REFLEX IMPAIRED [None]
  - HYPOAESTHESIA ORAL [None]
  - VOMITING [None]
  - LOSS OF CONSCIOUSNESS [None]
  - CYANOSIS [None]
